FAERS Safety Report 11211447 (Version 1)
Quarter: 2015Q2

REPORT INFORMATION
  Report Type: Report from Study
  Country: US (occurrence: US)
  Receive Date: 20150623
  Receipt Date: 20150623
  Transmission Date: 20150821
  Serious: Yes (Hospitalization, Other)
  Sender: FDA-Public Use
  Company Number: US-BAYER-2015-351448

PATIENT
  Age: 32 Year
  Sex: Female

DRUGS (1)
  1. YASMIN [Suspect]
     Active Substance: DROSPIRENONE\ETHINYL ESTRADIOL
     Indication: CONTRACEPTION
     Route: 048

REACTIONS (8)
  - Cardiac failure congestive [None]
  - Hypertension [None]
  - Blood pressure increased [None]
  - Contusion [None]
  - Myocardial infarction [None]
  - Pulmonary oedema [None]
  - Peripheral swelling [None]
  - Thrombosis [None]
